FAERS Safety Report 4575123-7 (Version None)
Quarter: 2005Q1

REPORT INFORMATION
  Report Type: 
  Country: None (occurrence: None)
  Receive Date: 20050208
  Receipt Date: 20050201
  Transmission Date: 20050727
  Serious: Yes (Hospitalization)
  Sender: FDA-Public Use
  Company Number: US-BRISTOL-MYERS SQUIBB COMPANY-12844882

PATIENT
  Age: 53 Year
  Sex: Male

DRUGS (19)
  1. CETUXIMAB [Suspect]
     Indication: OESOPHAGEAL ADENOCARCINOMA
     Dosage: THERAPY STAT DATE SEPTEMBER 2004
     Route: 042
     Dates: start: 20050101
  2. CISPLATIN [Suspect]
     Indication: OESOPHAGEAL ADENOCARCINOMA
  3. IRINOTECAN HCL [Suspect]
     Indication: OESOPHAGEAL ADENOCARCINOMA
  4. RADIATION THERAPY [Suspect]
     Indication: OESOPHAGEAL ADENOCARCINOMA
  5. OXYCODONE HCL [Suspect]
  6. COMPAZINE [Concomitant]
     Route: 048
  7. ZOFRAN [Concomitant]
     Indication: POST PROCEDURAL VOMITING
     Route: 048
  8. ZOFRAN [Concomitant]
     Indication: POST PROCEDURAL NAUSEA
     Route: 048
  9. ATIVAN [Concomitant]
     Route: 048
  10. DECADRON [Concomitant]
     Route: 048
  11. ELIDEL [Concomitant]
     Dosage: 1 PERCENT CREAM TOPICALLY TWICE PER DAY TO COVER TRUNK, FACE AND CHEST
     Route: 061
  12. KAOPECTATE [Concomitant]
     Indication: BURNING SENSATION
     Dosage: KAOPECTATE/NYSTATIN/DIPHENHYDRAMINE 1:1:1 10 ML SWISH + SWALLOW EVERY 4 HRS AS NEEDED FOR PAIN
     Route: 048
  13. KAOPECTATE [Concomitant]
     Indication: PAIN
     Dosage: KAOPECTATE/NYSTATIN/DIPHENHYDRAMINE 1:1:1 10 ML SWISH + SWALLOW EVERY 4 HRS AS NEEDED FOR PAIN
     Route: 048
  14. NYSTATIN [Concomitant]
     Indication: BURNING SENSATION
     Dosage: KAOPECTATE/NYSTATIN/DIPHENHYDRAMINE 1:1:1 10 ML SWISH + SWALLOW EVERY 4 HRS AS NEEDED FOR PAIN
     Route: 048
  15. NYSTATIN [Concomitant]
     Indication: PAIN
     Dosage: KAOPECTATE/NYSTATIN/DIPHENHYDRAMINE 1:1:1 10 ML SWISH + SWALLOW EVERY 4 HRS AS NEEDED FOR PAIN
     Route: 048
  16. DIPHENHYDRAMINE HCL [Concomitant]
     Indication: BURNING SENSATION
     Dosage: KAOPECTATE/NYSTATIN/DIPHENHYDRAMINE 1:1:1 10 ML SWISH + SWALLOW EVERY 4 HRS AS NEEDED FOR PAIN
     Route: 048
  17. DIPHENHYDRAMINE HCL [Concomitant]
     Indication: PAIN
     Dosage: KAOPECTATE/NYSTATIN/DIPHENHYDRAMINE 1:1:1 10 ML SWISH + SWALLOW EVERY 4 HRS AS NEEDED FOR PAIN
     Route: 048
  18. PROTONIX [Concomitant]
     Route: 048
  19. ROXANOL [Concomitant]
     Indication: PAIN
     Dosage: 10 MG/5 ML SOLUTION, 5-10 ML EVERY 4 HOURS AS NEEDED
     Route: 048

REACTIONS (9)
  - ABDOMINAL PAIN [None]
  - ATELECTASIS [None]
  - COLLAPSE OF LUNG [None]
  - CONSTIPATION [None]
  - FOOD INTOLERANCE [None]
  - NAUSEA [None]
  - PLEURAL EFFUSION [None]
  - PNEUMONIA [None]
  - VOMITING [None]
